FAERS Safety Report 9163917 (Version 1)
Quarter: 2013Q1

REPORT INFORMATION
  Report Type: Spontaneous
  Country: US (occurrence: US)
  Receive Date: 20130314
  Receipt Date: 20130314
  Transmission Date: 20140127
  Serious: Yes (Other)
  Sender: FDA-Public Use
  Company Number: CHPA2013US004329

PATIENT
  Age: 70 Year
  Sex: Male

DRUGS (5)
  1. MAALOX ANTACID QUICKDISLV TABS RS LEMON [Suspect]
     Indication: HYPERCHLORHYDRIA
     Dosage: 1 OR 2 DF, 3 TO 4 TIMES A WEEK
     Route: 048
     Dates: start: 1993
  2. MAALOX ANTACID QUICKDISLV TABS RS LEMON [Suspect]
     Indication: DYSPEPSIA
  3. MAALOX ANTACID QUICKDISLV TABS RS LEMON [Suspect]
     Indication: NAUSEA
  4. ALLEREST [Concomitant]
     Indication: HYPERSENSITIVITY
     Dosage: 1 UNK, QD
     Route: 048
  5. PRILOSEC [Concomitant]
     Indication: GASTROOESOPHAGEAL REFLUX DISEASE
     Dosage: UNK
     Route: 048

REACTIONS (5)
  - Barrett^s oesophagus [Not Recovered/Not Resolved]
  - Gastrooesophageal reflux disease [Not Recovered/Not Resolved]
  - Off label use [Unknown]
  - Expired drug administered [Unknown]
  - Wrong technique in drug usage process [Unknown]
